FAERS Safety Report 4844697-0 (Version None)
Quarter: 2005Q4

REPORT INFORMATION
  Report Type: 
  Country: None (occurrence: None)
  Receive Date: 20051125
  Receipt Date: 20051111
  Transmission Date: 20060501
  Serious: Yes (Life-Threatening, Hospitalization)
  Sender: FDA-Public Use
  Company Number: 2005155837

PATIENT
  Age: 78 Year
  Sex: Male

DRUGS (9)
  1. LYRICA [Suspect]
     Indication: NEURALGIA
     Dosage: 150 MG (75 MG, 2 IN 1 D), ORAL
     Route: 048
  2. TRAMADOL (TRAMADOL) [Suspect]
     Indication: PAIN
     Dosage: 37.5 MG, ORAL
     Route: 048
  3. PARACETAMOL (PARACETAMOL) [Suspect]
     Indication: PAIN
     Dosage: 325 MG, ORAL
     Route: 048
  4. INSULIN [Concomitant]
  5. APLAKET (TICLOPIDINE HYDROCHLORIDE) [Concomitant]
  6. HYPERIUM (RILMENIDINE) [Concomitant]
  7. BLOPRESS (CANDESARTAN CILEXETIL) [Concomitant]
  8. OMNIC (TAMSULOSIN HYDROCHLORIDE) [Concomitant]
  9. ZOV800 (ACICLOVIR) [Concomitant]

REACTIONS (6)
  - COMA [None]
  - EPILEPSY [None]
  - FAECAL INCONTINENCE [None]
  - FALL [None]
  - HYPOGLYCAEMIA [None]
  - MYOCLONUS [None]
